FAERS Safety Report 18059387 (Version 1)
Quarter: 2020Q3

REPORT INFORMATION
  Report Type: Spontaneous
  Country: ES (occurrence: ES)
  Receive Date: 20200723
  Receipt Date: 20200723
  Transmission Date: 20201103
  Serious: Yes (Other)
  Sender: FDA-Public Use
  Company Number: ES-PFIZER INC-L-1R391

PATIENT
  Age: 38 Year
  Sex: Female

DRUGS (1)
  1. FELDENE [Suspect]
     Active Substance: PIROXICAM
     Indication: POLYARTHRITIS
     Dosage: 20 MG, 1X/DAY
     Route: 048
     Dates: start: 198807

REACTIONS (2)
  - Subacute cutaneous lupus erythematosus [Unknown]
  - Photosensitivity reaction [Unknown]
